FAERS Safety Report 5325647-X (Version None)
Quarter: 2007Q2

REPORT INFORMATION
  Report Type: 
  Country: None (occurrence: None)
  Receive Date: 20070515
  Receipt Date: 20070503
  Transmission Date: 20071010
  Serious: Yes (Hospitalization, Other)
  Sender: FDA-Public Use
  Company Number: US-PFIZER INC-2007036240

PATIENT
  Sex: Female

DRUGS (4)
  1. BEXTRA [Suspect]
     Indication: ARTHRITIS
     Dates: start: 20041001, end: 20041201
  2. BEXTRA [Suspect]
     Indication: PAIN
  3. CELEBREX [Suspect]
     Indication: ARTHRITIS
     Dates: start: 20010501, end: 20010701
  4. CELEBREX [Suspect]
     Indication: PAIN

REACTIONS (1)
  - CEREBROVASCULAR ACCIDENT [None]
